FAERS Safety Report 4619151-1 (Version None)
Quarter: 2005Q1

REPORT INFORMATION
  Report Type: 
  Country: None (occurrence: None)
  Receive Date: 20050325
  Receipt Date: 20050314
  Transmission Date: 20050727
  Serious: Yes (Death, Congenital Anomaly)
  Sender: FDA-Public Use
  Company Number: DE-GLAXOSMITHKLINE-B0374588A

PATIENT
  Sex: Male

DRUGS (4)
  1. ZIDOVUDINE [Suspect]
  2. LAMIVUDINE [Suspect]
  3. NELFINAVIR [Suspect]
  4. ZIDOVUDINE [Suspect]
     Route: 048

REACTIONS (14)
  - CAESAREAN SECTION [None]
  - CD4 LYMPHOCYTES DECREASED [None]
  - CD8 LYMPHOCYTES DECREASED [None]
  - CHROMOSOMAL MUTATION [None]
  - COMBINED IMMUNODEFICIENCY [None]
  - DRUG EXPOSURE DURING PREGNANCY [None]
  - GASTROENTERITIS ROTAVIRUS [None]
  - HYPOGAMMAGLOBULINAEMIA [None]
  - HYPOTONIA [None]
  - LYMPHOPENIA [None]
  - OPISTHOTONUS [None]
  - PNEUMONIA [None]
  - PREMATURE BABY [None]
  - THERAPY NON-RESPONDER [None]
